FAERS Safety Report 12176040 (Version 2)
Quarter: 2016Q1

REPORT INFORMATION
  Report Type: Spontaneous
  Country: BR (occurrence: BR)
  Receive Date: 20160314
  Receipt Date: 20160323
  Transmission Date: 20160526
  Serious: Yes (Death, Hospitalization, Other)
  Sender: FDA-Public Use
  Company Number: BR-PFIZER INC-2011049072

PATIENT
  Age: 83 Year
  Sex: Male
  Weight: 65 kg

DRUGS (3)
  1. LYRICA [Suspect]
     Active Substance: PREGABALIN
     Dosage: 150 MG, 2X/DAY
     Route: 048
     Dates: end: 20151128
  2. LYRICA [Suspect]
     Active Substance: PREGABALIN
     Indication: TRIGEMINAL NEURALGIA
     Dosage: 75 MG, UNK
     Route: 048
     Dates: start: 20101223
  3. TEGRETOL [Suspect]
     Active Substance: CARBAMAZEPINE
     Indication: TRIGEMINAL NEURALGIA
     Dosage: UNK

REACTIONS (15)
  - Chronic kidney disease [Fatal]
  - Asthenia [Unknown]
  - Infection [Fatal]
  - Femur fracture [Unknown]
  - Condition aggravated [Unknown]
  - Pneumonia [Fatal]
  - Acute respiratory failure [Fatal]
  - Kidney infection [Unknown]
  - Cerebrovascular accident [Unknown]
  - Pain [Unknown]
  - Multiple organ dysfunction syndrome [Fatal]
  - Fall [Recovered/Resolved]
  - Drug effect incomplete [Unknown]
  - Gastrointestinal disorder [Unknown]
  - Amnesia [Unknown]

NARRATIVE: CASE EVENT DATE: 2011
